FAERS Safety Report 15529184 (Version 1)
Quarter: 2018Q4

REPORT INFORMATION
  Report Type: Spontaneous
  Country: IT (occurrence: IT)
  Receive Date: 20181020
  Receipt Date: 20181020
  Transmission Date: 20190205
  Serious: Yes (Death)
  Sender: FDA-Public Use
  Company Number: IT-ABBVIE-18K-083-2526284-00

PATIENT
  Age: 50 Year
  Sex: Female

DRUGS (4)
  1. AZACITIDINE. [Concomitant]
     Active Substance: AZACITIDINE
     Indication: CHLOROMA
  2. VENCLYXTO [Suspect]
     Active Substance: VENETOCLAX
     Indication: CHLOROMA
     Dosage: RUMP UP: 100MG/1ST DAY
     Route: 048
  3. VENCLYXTO [Suspect]
     Active Substance: VENETOCLAX
     Dosage: 400 MG SINCE 3TH DAY
     Route: 048
  4. VENCLYXTO [Suspect]
     Active Substance: VENETOCLAX
     Dosage: 200MG/2ND DAY
     Route: 048

REACTIONS (2)
  - Off label use [Unknown]
  - Malignant neoplasm progression [Fatal]
